FAERS Safety Report 20746670 (Version 2)
Quarter: 2022Q2

REPORT INFORMATION
  Report Type: Spontaneous
  Country: US (occurrence: US)
  Receive Date: 20220425
  Receipt Date: 20220518
  Transmission Date: 20220720
  Serious: No
  Sender: FDA-Public Use
  Company Number: US-SA-SAC20220420000675

PATIENT
  Sex: Female
  Weight: 5.13 kg

DRUGS (1)
  1. LARONIDASE [Suspect]
     Active Substance: LARONIDASE
     Indication: Mucopolysaccharidosis I
     Dosage: 2.9 MILLIGRAM, QW
     Route: 042

REACTIONS (2)
  - Urinary glycosaminoglycans increased [Unknown]
  - Urine odour abnormal [Not Recovered/Not Resolved]
